FAERS Safety Report 13024379 (Version 1)
Quarter: 2016Q4

REPORT INFORMATION
  Report Type: Report from Study
  Country: US (occurrence: US)
  Receive Date: 20161213
  Receipt Date: 20161213
  Transmission Date: 20170207
  Serious: Yes (Hospitalization)
  Sender: FDA-Public Use
  Company Number: US-ACTELION-A-NJ2016-143542

PATIENT
  Age: 68 Year
  Sex: Male

DRUGS (17)
  1. SPIRONOLACTONE. [Concomitant]
     Active Substance: SPIRONOLACTONE
  2. OPSUMIT [Suspect]
     Active Substance: MACITENTAN
     Indication: PRODUCT USED FOR UNKNOWN INDICATION
     Dosage: 10 MG, QD
     Route: 048
  3. WARFARIN [Concomitant]
     Active Substance: WARFARIN
  4. DIGOXIN. [Concomitant]
     Active Substance: DIGOXIN
  5. AMIODARONE [Concomitant]
     Active Substance: AMIODARONE
  6. SILDENAFIL. [Concomitant]
     Active Substance: SILDENAFIL
  7. SIMVASTATIN. [Concomitant]
     Active Substance: SIMVASTATIN
  8. CARVEDILOL. [Concomitant]
     Active Substance: CARVEDILOL
  9. FUROSEMIDE. [Concomitant]
     Active Substance: FUROSEMIDE
  10. CALCITRIOL. [Concomitant]
     Active Substance: CALCITRIOL
  11. AMBIEN [Concomitant]
     Active Substance: ZOLPIDEM TARTRATE
  12. VITAMIN D3 [Concomitant]
     Active Substance: CHOLECALCIFEROL
  13. ASPIRIN. [Concomitant]
     Active Substance: ASPIRIN
  14. MULTIVITAMIN [Concomitant]
     Active Substance: VITAMINS
  15. DONEPEZIL. [Concomitant]
     Active Substance: DONEPEZIL
  16. GABAPENTIN. [Concomitant]
     Active Substance: GABAPENTIN
  17. LORAZEPAM. [Concomitant]
     Active Substance: LORAZEPAM

REACTIONS (3)
  - Fatigue [Unknown]
  - Cardiac operation [Unknown]
  - Malaise [Unknown]
